FAERS Safety Report 6819934-3 (Version None)
Quarter: 2010Q2

REPORT INFORMATION
  Report Type: 
  Country: None (occurrence: None)
  Receive Date: 20100630
  Receipt Date: 20100621
  Transmission Date: 20101027
  Serious: Yes (Death, Other)
  Sender: FDA-Public Use
  Company Number: APP201000544

PATIENT
  Age: 62 Year
  Sex: Female

DRUGS (3)
  1. HEPARIN SODIUM INJECTION [Suspect]
     Indication: DRUG USE FOR UNKNOWN INDICATION
     Dates: start: 20080101, end: 20080301
  2. HEPARIN [Suspect]
     Indication: DRUG USE FOR UNKNOWN INDICATION
     Dates: start: 20080101, end: 20080301
  3. HEPARIN [Suspect]
     Indication: DRUG USE FOR UNKNOWN INDICATION
     Dates: start: 20080101, end: 20080301

REACTIONS (6)
  - DIARRHOEA [None]
  - LUNG NEOPLASM MALIGNANT [None]
  - MALNUTRITION [None]
  - PULMONARY AIR LEAKAGE [None]
  - RESPIRATORY FAILURE [None]
  - SEPSIS [None]
